FAERS Safety Report 6844436-8 (Version None)
Quarter: 2010Q3

REPORT INFORMATION
  Report Type: 
  Country: None (occurrence: None)
  Receive Date: 20100715
  Receipt Date: 20100706
  Transmission Date: 20110219
  Serious: Yes (Life-Threatening, Hospitalization, Other)
  Sender: FDA-Public Use
  Company Number: JP-JNJFOC-20100703399

PATIENT
  Age: 56 Year
  Sex: Male

DRUGS (4)
  1. ITRACONAZOLE [Suspect]
     Indication: INFECTION PROPHYLAXIS
     Dosage: 21 DAY CYCLE
     Route: 065
  2. BORTEZOMIB [Interacting]
     Indication: MULTIPLE MYELOMA
     Route: 042
  3. DEXAMETHASONE [Suspect]
     Indication: MULTIPLE MYELOMA
     Route: 048
  4. LANSOPRAZOLE [Suspect]
     Indication: PRODUCT USED FOR UNKNOWN INDICATION

REACTIONS (3)
  - DRUG INTERACTION [None]
  - NEUROPATHY PERIPHERAL [None]
  - THROMBOCYTOPENIA [None]
